FAERS Safety Report 15626602 (Version 2)
Quarter: 2018Q4

REPORT INFORMATION
  Report Type: Report from Study
  Country: JP (occurrence: JP)
  Receive Date: 20181116
  Receipt Date: 20181226
  Transmission Date: 20190205
  Serious: Yes (Other)
  Sender: FDA-Public Use
  Company Number: JP-ASTRAZENECA-2018SF49213

PATIENT
  Age: 75 Year
  Sex: Female
  Weight: 37 kg

DRUGS (5)
  1. LYNPARZA TABLETS 150 MG [Suspect]
     Active Substance: OLAPARIB
     Indication: OVARIAN CANCER
     Route: 048
     Dates: start: 20180911, end: 20181005
  2. LYNPARZA TABLETS 150 MG [Suspect]
     Active Substance: OLAPARIB
     Indication: OVARIAN CANCER
     Route: 048
     Dates: start: 20180528, end: 20180625
  3. LYNPARZA TABLETS 150 MG [Suspect]
     Active Substance: OLAPARIB
     Indication: OVARIAN CANCER
     Route: 048
     Dates: start: 20180417, end: 20180430
  4. LYNPARZA TABLETS 150 MG [Suspect]
     Active Substance: OLAPARIB
     Indication: OVARIAN CANCER
     Route: 048
     Dates: start: 20180710, end: 20180823
  5. LYNPARZA TABLETS 150 MG [Suspect]
     Active Substance: OLAPARIB
     Indication: OVARIAN CANCER
     Route: 048
     Dates: start: 20180327, end: 20180409

REACTIONS (3)
  - Renal impairment [Recovered/Resolved]
  - Anaemia [Recovered/Resolved]
  - Erythema nodosum [Recovering/Resolving]

NARRATIVE: CASE EVENT DATE: 20180410
